FAERS Safety Report 9015959 (Version 1)
Quarter: 2013Q1

REPORT INFORMATION
  Report Type: Spontaneous
  Country: US (occurrence: US)
  Receive Date: 20130116
  Receipt Date: 20130116
  Transmission Date: 20140127
  Serious: Yes (Life-Threatening, Other)
  Sender: FDA-Public Use
  Company Number: US-009507513-1301USA003489

PATIENT
  Age: 69 Year
  Sex: Female

DRUGS (17)
  1. SINGULAIR [Suspect]
     Route: 048
  2. PROTELOS [Suspect]
     Indication: ASTHMA
     Route: 048
  3. PANTOPRAZOLE SODIUM [Suspect]
     Indication: OSTEOPOROSIS
     Route: 048
  4. XOLAIR [Suspect]
     Indication: PRODUCT USED FOR UNKNOWN INDICATION
     Route: 058
  5. XOLAIR [Suspect]
     Dosage: DOSAGE DECREASED
     Route: 058
  6. XOLAIR [Suspect]
     Dosage: DOSAGE INCREASED
     Route: 058
  7. PREDNISONE [Suspect]
     Route: 048
  8. BRICANYL [Suspect]
     Dosage: 30 MG, RESPIRATORY (INHALATION)
  9. FENOFIBRATE [Suspect]
  10. SYMBICORT [Suspect]
     Dosage: 400/12 MCG, RESPIRATORY (INHALATION)
  11. ALDACTONE TABLETS [Suspect]
     Route: 048
  12. DEDROGYL [Suspect]
     Dosage: 3 DOSAGE FORMS
     Route: 048
  13. CACIT VITAMINE D3 [Suspect]
     Route: 048
  14. UTEPLEX [Suspect]
     Route: 048
  15. ACETAMINOPHEN [Suspect]
     Route: 048
  16. DESLORATADINE [Suspect]
     Dosage: 1 DOSAGE FORM, RESPIRATORY (INHALATION)
  17. ATROVENT [Suspect]
     Dosage: RESPIRATORY (INHALATION)

REACTIONS (3)
  - Squamous cell carcinoma [Unknown]
  - Neuralgia [Unknown]
  - Chest pain [Unknown]
